FAERS Safety Report 9966780 (Version 1)
Quarter: 2014Q1

REPORT INFORMATION
  Report Type: Report from Study
  Country: US (occurrence: US)
  Receive Date: 20140305
  Receipt Date: 20140305
  Transmission Date: 20141002
  Serious: No
  Sender: FDA-Public Use
  Company Number: US-ABBVIE-13P-163-1122808-00

PATIENT
  Age: 33 Year
  Sex: Male
  Weight: 79.45 kg

DRUGS (3)
  1. HUMIRA [Suspect]
     Indication: COLITIS ULCERATIVE
     Dosage: STOPPED DUE TO LOSS OF INSURANCE
     Route: 058
     Dates: start: 2007, end: 2007
  2. HUMIRA [Suspect]
     Dosage: OFF AND ON A COUPLE TIMES THROUGHOUT THE YEARS
     Route: 058
  3. HUMIRA [Suspect]
     Route: 058
     Dates: start: 20130712

REACTIONS (2)
  - Inappropriate schedule of drug administration [Not Recovered/Not Resolved]
  - Colitis ulcerative [Recovering/Resolving]
